FAERS Safety Report 10065474 (Version 1)
Quarter: 2014Q2

REPORT INFORMATION
  Report Type: Spontaneous
  Country: US (occurrence: None)
  Receive Date: 20140401
  Receipt Date: 20140401
  Transmission Date: 20141212
  Serious: Yes (Hospitalization)
  Sender: FDA-Public Use
  Company Number: PHEH2013US020304

PATIENT
  Sex: Male

DRUGS (2)
  1. EXELON PATCH [Suspect]
     Route: 062
  2. NAMEDNA (MEMANTINE HYDROCHLORIDE) [Concomitant]

REACTIONS (2)
  - Vomiting projectile [None]
  - Nausea [None]
